FAERS Safety Report 9399001 (Version 1)
Quarter: 2013Q3

REPORT INFORMATION
  Report Type: Spontaneous
  Country: US (occurrence: US)
  Receive Date: 20130714
  Receipt Date: 20130714
  Transmission Date: 20140515
  Serious: No
  Sender: FDA-Public Use
  Company Number: US-009507513-1307USA005618

PATIENT
  Sex: 0

DRUGS (19)
  1. SAPHRIS [Suspect]
     Indication: BIPOLAR II DISORDER
     Dosage: 10 MG, QPM
     Route: 048
  2. LAMICTAL [Concomitant]
     Dosage: 325 MG
  3. WELLBUTRIN XL [Concomitant]
     Dosage: 450 MG
  4. NEUROTIN (ACETYLCARNITINE HYDROCHLORIDE) [Concomitant]
     Dosage: 900 MG
  5. KLONOPIN [Concomitant]
     Dosage: 1.5 MG
  6. TRAZODONE HYDROCHLORIDE [Concomitant]
     Dosage: UP TO 200 MG
  7. PROZOSIN [Concomitant]
     Dosage: 2 MG
  8. INDERAL [Concomitant]
     Dosage: 20 MG, PRN
  9. NORCO [Concomitant]
     Dosage: 10MG/325 PRN
  10. SOMA [Concomitant]
     Dosage: 350 MG, PRN
  11. PERCOCET [Concomitant]
     Dosage: 10 MG/325 PRN
  12. ADVAIR [Concomitant]
  13. NASONEX [Concomitant]
  14. VENTOLIN (ALBUTEROL SULFATE) [Concomitant]
     Dosage: UNK, PRN
  15. ALLEGRA [Concomitant]
  16. AVALIDE [Concomitant]
  17. DEXILANT [Concomitant]
  18. LEVOTHYROXINE SODIUM [Concomitant]
  19. PRAVACHOL [Concomitant]

REACTIONS (6)
  - Drug ineffective [Unknown]
  - Sedation [Unknown]
  - Inappropriate schedule of drug administration [Unknown]
  - Initial insomnia [Unknown]
  - Feeling abnormal [Unknown]
  - Off label use [Unknown]
